FAERS Safety Report 7530703-1 (Version None)
Quarter: 2011Q2

REPORT INFORMATION
  Report Type: 
  Country: None (occurrence: None)
  Receive Date: 20110607
  Receipt Date: 20110601
  Transmission Date: 20111010
  Serious: Yes (Other)
  Sender: FDA-Public Use
  Company Number: US-ABBOTT-11P-163-0730060-00

PATIENT
  Sex: Male
  Weight: 84.898 kg

DRUGS (4)
  1. MICARDIS [Concomitant]
     Indication: PRODUCT USED FOR UNKNOWN INDICATION
  2. METOPROLOL SUCCINATE [Concomitant]
     Indication: PRODUCT USED FOR UNKNOWN INDICATION
  3. NIASPAN [Suspect]
     Indication: HIGH DENSITY LIPOPROTEIN DECREASED
     Dosage: AT BEDTIME; 1 IN 1 DAY
     Dates: start: 20090101
  4. ASPIRIN [Concomitant]
     Indication: ANTICOAGULANT THERAPY

REACTIONS (3)
  - FLUSHING [None]
  - CORONARY ARTERY OCCLUSION [None]
  - PARAESTHESIA [None]
